FAERS Safety Report 7980675-0 (Version None)
Quarter: 2011Q4

REPORT INFORMATION
  Report Type: 
  Country: None (occurrence: None)
  Receive Date: 20111214
  Receipt Date: 20111205
  Transmission Date: 20120403
  Serious: Yes (Hospitalization, Other)
  Sender: FDA-Public Use
  Company Number: US-ASTRAZENECA-2011SE06679

PATIENT
  Age: 51 Year
  Sex: Female

DRUGS (6)
  1. PERCOCET [Concomitant]
  2. SEROQUEL [Suspect]
     Route: 048
  3. OXYCODONE HCL [Concomitant]
  4. XANAX [Concomitant]
  5. SYMBICORT [Suspect]
     Route: 055
  6. AMBIEN [Concomitant]

REACTIONS (11)
  - PULMONARY EMBOLISM [None]
  - LUNG INFILTRATION [None]
  - MENTAL DISORDER [None]
  - PAIN [None]
  - CONVULSION [None]
  - ATELECTASIS [None]
  - CHRONIC OBSTRUCTIVE PULMONARY DISEASE [None]
  - PNEUMONIA [None]
  - HYPOXIA [None]
  - MYALGIA [None]
  - SOMNOLENCE [None]
